FAERS Safety Report 7296326-7 (Version None)
Quarter: 2011Q1

REPORT INFORMATION
  Report Type: 
  Country: None (occurrence: None)
  Receive Date: 20110211
  Receipt Date: 20110211
  Transmission Date: 20110831
  Serious: Yes (Other)
  Sender: FDA-Public Use
  Company Number: None

PATIENT
  Age: 83 Year
  Sex: Female
  Weight: 54.4316 kg

DRUGS (8)
  1. EYE VITAMINS [Concomitant]
  2. DIGOXIN [Concomitant]
  3. SIMVASTATIN [Concomitant]
  4. MULTAQ [Suspect]
     Indication: ATRIAL FIBRILLATION
     Dosage: 400 MG 2 X DAILY ORALLY
     Route: 048
     Dates: start: 20091201
  5. ATENOLOL [Concomitant]
  6. ONE A DAY VITAMINS [Concomitant]
  7. WARFARIN [Concomitant]
  8. CALCIUM [Concomitant]

REACTIONS (4)
  - ASTHENIA [None]
  - AMNESIA [None]
  - CONFUSIONAL STATE [None]
  - HALLUCINATION, VISUAL [None]
